FAERS Safety Report 9051273 (Version 1)
Quarter: 2013Q1

REPORT INFORMATION
  Report Type: Spontaneous
  Country: US (occurrence: US)
  Receive Date: 20130206
  Receipt Date: 20130206
  Transmission Date: 20140127
  Serious: No
  Sender: FDA-Public Use
  Company Number: US-009507513-1302USA001398

PATIENT
  Sex: Female

DRUGS (3)
  1. JANUVIA [Suspect]
     Indication: TYPE 2 DIABETES MELLITUS
     Dosage: 100 MG, QD
     Route: 048
     Dates: start: 2010
  2. METFORMIN [Concomitant]
  3. GLIMEPIRIDE [Concomitant]

REACTIONS (8)
  - Skin lesion [Unknown]
  - Vision blurred [Unknown]
  - Hair growth abnormal [Unknown]
  - Nail ridging [Unknown]
  - Skin discolouration [Unknown]
  - Skin hypertrophy [Unknown]
  - Anxiety [Unknown]
  - Impaired healing [Unknown]
